FAERS Safety Report 19222006 (Version 1)
Quarter: 2021Q2

REPORT INFORMATION
  Report Type: Report from Study
  Country: US (occurrence: US)
  Receive Date: 20210505
  Receipt Date: 20210505
  Transmission Date: 20210717
  Serious: Yes (Hospitalization)
  Sender: FDA-Public Use
  Company Number: US-TAKEDA-2021TUS026933

PATIENT
  Sex: Male

DRUGS (1)
  1. VEDOLIZUMAB [Suspect]
     Active Substance: VEDOLIZUMAB
     Indication: ORAL MELANOCYTIC NAEVUS
     Dosage: 300 MILLIGRAM, Q8WEEKS
     Route: 042
     Dates: start: 20210318

REACTIONS (2)
  - Off label use [Unknown]
  - Hospitalisation [Unknown]
